FAERS Safety Report 6187648-1 (Version None)
Quarter: 2009Q2

REPORT INFORMATION
  Report Type: 
  Country: None (occurrence: None)
  Receive Date: 20090511
  Receipt Date: 20090427
  Transmission Date: 20091009
  Serious: Yes (Other)
  Sender: FDA-Public Use
  Company Number: DSU-2009-00965

PATIENT
  Age: 42 Year
  Sex: Male
  Weight: 104.5 kg

DRUGS (2)
  1. BENICAR HCT [Suspect]
     Indication: HYPERTENSION
     Dosage: PER ORAL
     Route: 048
     Dates: start: 20090313
  2. ANDROGEL [Suspect]
     Indication: DRUG USE FOR UNKNOWN INDICATION
     Dosage: 5 GM (5 GM,QD) TRANSDERMAL
     Route: 062
     Dates: start: 20090313, end: 20090319

REACTIONS (1)
  - CONVULSION [None]
